FAERS Safety Report 19096530 (Version 1)
Quarter: 2021Q2

REPORT INFORMATION
  Report Type: Spontaneous
  Country: US (occurrence: US)
  Receive Date: 20210405
  Receipt Date: 20210405
  Transmission Date: 20210717
  Serious: No
  Sender: FDA-Public Use
  Company Number: None

PATIENT
  Sex: Male

DRUGS (3)
  1. CLARTIN [Concomitant]
  2. MATULANE [Concomitant]
     Active Substance: PROCARBAZINE HYDROCHLORIDE
  3. GLEOSTINE [Suspect]
     Active Substance: LOMUSTINE
     Indication: BRAIN NEOPLASM MALIGNANT
     Route: 048
     Dates: start: 20210107

REACTIONS (2)
  - White blood cell count decreased [None]
  - Red blood cell count decreased [None]
